FAERS Safety Report 12666226 (Version 1)
Quarter: 2016Q3

REPORT INFORMATION
  Report Type: Spontaneous
  Country: US (occurrence: US)
  Receive Date: 20160818
  Receipt Date: 20160818
  Transmission Date: 20161109
  Serious: No
  Sender: FDA-Public Use
  Company Number: US-JAZZ-2016-US-005610

PATIENT
  Sex: Female

DRUGS (12)
  1. ALKA-SELTZER [Concomitant]
     Active Substance: ANHYDROUS CITRIC ACID\ASPIRIN\SODIUM BICARBONATE
  2. XYREM [Suspect]
     Active Substance: SODIUM OXYBATE
     Indication: CATAPLEXY
     Dosage: DOSE ADJUSTMENT
     Route: 048
  3. XYREM [Suspect]
     Active Substance: SODIUM OXYBATE
     Dosage: 4.5 G, BID
     Route: 048
     Dates: start: 2015
  4. BENADRYL [Concomitant]
     Active Substance: DIPHENHYDRAMINE HYDROCHLORIDE
  5. XYREM [Suspect]
     Active Substance: SODIUM OXYBATE
     Indication: NARCOLEPSY
     Dosage: 2.25 G, BID
     Route: 048
     Dates: start: 201510, end: 201510
  6. AZO CRANBERRY [Concomitant]
  7. PREVACID [Concomitant]
     Active Substance: LANSOPRAZOLE
  8. CARAFATE [Concomitant]
     Active Substance: SUCRALFATE
  9. CLOMIPRAMINE [Concomitant]
     Active Substance: CLOMIPRAMINE
  10. LYRICA [Concomitant]
     Active Substance: PREGABALIN
  11. IBUPROFEN. [Concomitant]
     Active Substance: IBUPROFEN
  12. FISH OIL [Concomitant]
     Active Substance: FISH OIL

REACTIONS (3)
  - Malaise [Unknown]
  - Pain in extremity [Not Recovered/Not Resolved]
  - Fibromyalgia [Unknown]
